FAERS Safety Report 11230219 (Version 2)
Quarter: 2015Q4

REPORT INFORMATION
  Report Type: Spontaneous
  Country: CO (occurrence: CO)
  Receive Date: 20150701
  Receipt Date: 20151110
  Transmission Date: 20160304
  Serious: Yes (Other)
  Sender: FDA-Public Use
  Company Number: CO-AMGEN-COLSP2015064355

PATIENT
  Age: 56 Year
  Sex: Female

DRUGS (1)
  1. ENBREL [Suspect]
     Active Substance: ETANERCEPT
     Indication: RHEUMATOID ARTHRITIS
     Dosage: 50 MG, WEEKLY
     Route: 058
     Dates: start: 2005, end: 201507

REACTIONS (7)
  - Cystitis [Not Recovered/Not Resolved]
  - Stomach mass [Not Recovered/Not Resolved]
  - Melanocytic naevus [Not Recovered/Not Resolved]
  - Fungal skin infection [Not Recovered/Not Resolved]
  - Immunodeficiency [Unknown]
  - Hyperkeratosis [Not Recovered/Not Resolved]
  - Skin papilloma [Not Recovered/Not Resolved]

NARRATIVE: CASE EVENT DATE: 2011
